FAERS Safety Report 7917824-6 (Version None)
Quarter: 2011Q4

REPORT INFORMATION
  Report Type: 
  Country: None (occurrence: None)
  Receive Date: 20111116
  Receipt Date: 20111103
  Transmission Date: 20120403
  Serious: Yes (Hospitalization)
  Sender: FDA-Public Use
  Company Number: PHEH2009US00440

PATIENT
  Sex: Female

DRUGS (15)
  1. MELOXICAM [Concomitant]
  2. ASPIRIN [Concomitant]
  3. ZOFRAN [Concomitant]
     Dosage: UNK
  4. REGLAN [Concomitant]
  5. NITROGLYCERIN [Concomitant]
  6. FIBER [Concomitant]
     Dosage: UNK
  7. MULTI-VITAMIN [Concomitant]
  8. TASIGNA [Suspect]
     Indication: CHRONIC MYELOID LEUKAEMIA
     Dosage: 200 MG, BID
     Route: 048
     Dates: start: 20081101
  9. NEURONTIN [Concomitant]
     Dosage: UNK
  10. SCOPOLAMINE [Concomitant]
  11. CALCIUM CARBONATE [Concomitant]
     Dosage: UNK
  12. AMITRIPTYLINE HCL [Concomitant]
  13. MAGNESIUM HYDROXIDE TAB [Concomitant]
  14. LEXAPRO [Concomitant]
  15. AMOXIL [Concomitant]
     Dosage: UNK

REACTIONS (7)
  - NAUSEA [None]
  - HYPOAESTHESIA [None]
  - GASTROINTESTINAL DISORDER [None]
  - DIARRHOEA [None]
  - CONSTIPATION [None]
  - CHEST DISCOMFORT [None]
  - DYSPEPSIA [None]
